FAERS Safety Report 5126472-5 (Version None)
Quarter: 2006Q4

REPORT INFORMATION
  Report Type: 
  Country: None (occurrence: None)
  Receive Date: 20061010
  Receipt Date: 20060928
  Transmission Date: 20070319
  Serious: Yes (Hospitalization, Other)
  Sender: FDA-Public Use
  Company Number: 2006110566

PATIENT
  Age: 57 Year
  Sex: Male
  Weight: 95.709 kg

DRUGS (7)
  1. SOMAVERT [Suspect]
     Indication: ACROMEGALY
     Dosage: (40 MG, SUBCUTANEOUS
     Route: 058
     Dates: start: 20060804, end: 20060804
  2. SIMVASTATIN [Concomitant]
  3. ANDROGEL [Concomitant]
  4. LIPITOR [Concomitant]
  5. TOPROL-XL [Concomitant]
  6. HYDROCHLOROTHIAZIDE [Concomitant]
  7. SANDOSTATIN LAR [Concomitant]

REACTIONS (5)
  - BLOOD GLUCOSE INCREASED [None]
  - DIZZINESS [None]
  - DRUG HYPERSENSITIVITY [None]
  - HEADACHE [None]
  - IMPAIRED WORK ABILITY [None]
